FAERS Safety Report 13780624 (Version 3)
Quarter: 2017Q4

REPORT INFORMATION
  Report Type: Spontaneous
  Country: US (occurrence: US)
  Receive Date: 20170724
  Receipt Date: 20171012
  Transmission Date: 20180320
  Serious: Yes (Other)
  Sender: FDA-Public Use
  Company Number: US-PFIZER INC-2017315896

PATIENT
  Age: 68 Year
  Sex: Female
  Weight: 77.11 kg

DRUGS (20)
  1. VITAMIN D3 [Concomitant]
     Active Substance: CHOLECALCIFEROL
     Dosage: 1 GEL TABLET A DAY/5,000 UNITS DAILY
     Dates: start: 2016
  2. TYLENOL [Concomitant]
     Active Substance: ACETAMINOPHEN
     Indication: MYALGIA
  3. PREDNISOLONE. [Suspect]
     Active Substance: PREDNISOLONE
     Dosage: 4X/DAY (GTTS)
  4. TYLENOL [Concomitant]
     Active Substance: ACETAMINOPHEN
     Indication: HEADACHE
     Dosage: UNK, AS NEEDED
  5. CALCIUM [Concomitant]
     Active Substance: CALCIUM
     Dosage: UNK
  6. ZINC. [Concomitant]
     Active Substance: ZINC
  7. VITAMIN D3 [Concomitant]
     Active Substance: CHOLECALCIFEROL
     Indication: VITAMIN D DEFICIENCY
     Dosage: 1 GEL TABLET A DAY/INITIAL DOSE WAS 50,000 UNITS ONCE A WEEK
     Dates: start: 2014
  8. ASPIRIN. [Concomitant]
     Active Substance: ASPIRIN
     Indication: ARTERIAL DISORDER
  9. ADVIL [Concomitant]
     Active Substance: IBUPROFEN
     Indication: MYALGIA
  10. CALCIUM MAGNESIUM AND ZINC [Concomitant]
     Indication: MEMORY IMPAIRMENT
  11. LYRICA [Suspect]
     Active Substance: PREGABALIN
     Dosage: 75 MG, 2X/DAY
     Route: 048
     Dates: start: 201701
  12. LYRICA [Suspect]
     Active Substance: PREGABALIN
     Dosage: 50 MG, 2X/DAY
  13. PRAVASTATIN. [Concomitant]
     Active Substance: PRAVASTATIN
     Indication: HYPERCHOLESTEROLAEMIA
     Dosage: 40 MG, 1X/DAY
     Dates: start: 2002
  14. ASPIRIN. [Concomitant]
     Active Substance: ASPIRIN
     Indication: CEREBROVASCULAR ACCIDENT PROPHYLAXIS
     Dosage: 81 MG, DAILY
     Dates: start: 2012
  15. ADVIL [Concomitant]
     Active Substance: IBUPROFEN
     Indication: HEADACHE
     Dosage: UNK, AS NEEDED
  16. CALCIUM MAGNESIUM AND ZINC [Concomitant]
     Indication: OSTEOPENIA
     Dosage: [1500MG CALCIUM, 750MG MAGNESIUM, 45MG ZINC], DAILY
     Dates: start: 2016
  17. CALCIUM CITRATE WITH VITAMIN D [Concomitant]
     Active Substance: CALCIUM CITRATE\VITAMIN D
     Indication: OSTEOPENIA
     Dosage: [CALCIUM 630MG, VITAMIN D 500IU, SODIUM 10MG], DAILY
     Dates: start: 2015
  18. LYRICA [Suspect]
     Active Substance: PREGABALIN
     Indication: HERPES ZOSTER
     Dosage: 150 MG, 2X/DAY
     Route: 048
     Dates: start: 201701
  19. TOBRAMYCIN. [Suspect]
     Active Substance: TOBRAMYCIN
     Dosage: UNK, WEEKLY(HS X 1WEEK)
     Route: 001
  20. SYNTHROID [Concomitant]
     Active Substance: LEVOTHYROXINE SODIUM
     Indication: HYPOTHYROIDISM
     Dosage: 137 UG, 1X/DAY

REACTIONS (7)
  - Ocular hyperaemia [Unknown]
  - Vision blurred [Recovering/Resolving]
  - Impaired driving ability [Not Recovered/Not Resolved]
  - Conjunctivitis [Recovered/Resolved]
  - Thinking abnormal [Recovering/Resolving]
  - Memory impairment [Not Recovered/Not Resolved]
  - Visual impairment [Unknown]

NARRATIVE: CASE EVENT DATE: 201706
